FAERS Safety Report 8136652-2 (Version None)
Quarter: 2012Q1

REPORT INFORMATION
  Report Type: 
  Country: None (occurrence: None)
  Receive Date: 20120214
  Receipt Date: 20120207
  Transmission Date: 20120608
  Serious: Yes (Other)
  Sender: FDA-Public Use
  Company Number: US-ROCHE-793748

PATIENT
  Sex: Female
  Weight: 66.738 kg

DRUGS (2)
  1. ACCUTANE [Suspect]
  2. ACCUTANE [Suspect]
     Indication: ACNE
     Dosage: IN ERLY 1980'S
     Route: 065

REACTIONS (12)
  - BIPOLAR DISORDER [None]
  - INSOMNIA [None]
  - ANAEMIA [None]
  - EMOTIONAL DISTRESS [None]
  - HYPERTENSION [None]
  - DEPRESSION [None]
  - PANCREATITIS [None]
  - CHRONIC FATIGUE SYNDROME [None]
  - COLITIS ULCERATIVE [None]
  - INFLAMMATORY BOWEL DISEASE [None]
  - IRRITABLE BOWEL SYNDROME [None]
  - CROHN'S DISEASE [None]
